FAERS Safety Report 7012092-4 (Version None)
Quarter: 2010Q3

REPORT INFORMATION
  Report Type: 
  Country: None (occurrence: None)
  Receive Date: 20100922
  Receipt Date: 20100922
  Transmission Date: 20110219
  Serious: Yes (Other)
  Sender: FDA-Public Use
  Company Number: None

PATIENT
  Age: 76 Year
  Sex: Female

DRUGS (2)
  1. NADOLOL [Suspect]
     Indication: HEART RATE INCREASED
     Dosage: 40MG 2 TIMES A DAY
     Dates: start: 20100823, end: 20100827
  2. NADOLOL [Suspect]
     Indication: HYPERTENSION
     Dosage: 40MG 2 TIMES A DAY
     Dates: start: 20100823, end: 20100827

REACTIONS (4)
  - ERYTHEMA [None]
  - HYPOAESTHESIA [None]
  - PAIN IN EXTREMITY [None]
  - PRODUCT QUALITY ISSUE [None]
